FAERS Safety Report 25874393 (Version 2)
Quarter: 2025Q4

REPORT INFORMATION
  Report Type: Spontaneous
  Country: EU (occurrence: EU)
  Receive Date: 20251002
  Receipt Date: 20251007
  Transmission Date: 20260117
  Serious: Yes (Other)
  Sender: PFIZER
  Company Number: EU-PFM-2025-04553

PATIENT
  Age: 45 Year
  Sex: Female

DRUGS (4)
  1. BRAFTOVI [Suspect]
     Active Substance: ENCORAFENIB
     Indication: BRAF gene mutation
     Dosage: 450 MG, QD (1/DAY)
     Route: 065
     Dates: start: 20250811, end: 20250818
  2. BRAFTOVI [Suspect]
     Active Substance: ENCORAFENIB
     Dosage: 450 MG, QD (1/DAY)
     Route: 065
     Dates: start: 20250825, end: 20250915
  3. MEKTOVI [Suspect]
     Active Substance: BINIMETINIB
     Indication: Lung neoplasm malignant
     Dosage: 45 MG, 2X/DAY(BID (2/DAY))
     Route: 065
     Dates: start: 20250811, end: 20250818
  4. MEKTOVI [Suspect]
     Active Substance: BINIMETINIB
     Dosage: 45 MG, 2X/DAY (BID (2/DAY))
     Route: 065
     Dates: start: 20250825, end: 20250915

REACTIONS (2)
  - Panniculitis [Recovered/Resolved]
  - Panniculitis [Not Recovered/Not Resolved]

NARRATIVE: CASE EVENT DATE: 20250818
